FAERS Safety Report 4930892-9 (Version None)
Quarter: 2006Q1

REPORT INFORMATION
  Report Type: 
  Country: None (occurrence: None)
  Receive Date: 20060227
  Receipt Date: 20060214
  Transmission Date: 20060701
  Serious: Yes (Other)
  Sender: FDA-Public Use
  Company Number: CAP06000041

PATIENT
  Age: 59 Year
  Sex: Female

DRUGS (4)
  1. ACTONEL [Suspect]
     Indication: OSTEOPOROSIS
     Dosage: 35 MG ONCE WEEKLY, ORAL
     Route: 048
     Dates: start: 20030701
  2. HYDROCHLOROTHIAZIDE [Concomitant]
  3. ALDACTAZIDE (SPIRONOLACTONE, HYDROCHLOROTHIAZIDE) [Concomitant]
  4. VITAMINS WITH MINERALS [Concomitant]

REACTIONS (3)
  - ALANINE AMINOTRANSFERASE INCREASED [None]
  - BASEDOW'S DISEASE [None]
  - BLOOD ALKALINE PHOSPHATASE INCREASED [None]
